FAERS Safety Report 5747161-X (Version None)
Quarter: 2008Q2

REPORT INFORMATION
  Report Type: 
  Country: None (occurrence: None)
  Receive Date: 20080520
  Receipt Date: 20080430
  Transmission Date: 20081010
  Serious: Yes (Hospitalization)
  Sender: FDA-Public Use
  Company Number: APP200800359

PATIENT
  Age: 61 Year
  Sex: Male
  Weight: 92.5338 kg

DRUGS (3)
  1. CARBOPLATIN [Suspect]
     Indication: METASTATIC NEOPLASM
     Dosage: 759 MG, DAY 1 OF 21 DAY CYCLE, INTRAVENOUS
     Route: 042
     Dates: start: 20080311, end: 20080311
  2. PACLITAXEL [Suspect]
     Indication: METASTATIC NEOPLASM
     Dosage: 436 MG, DAY 1 OF 21 DAY CYCLE, INTRAVENOUS
     Route: 042
     Dates: start: 20080311, end: 20080311
  3. ETOPOSIDE [Suspect]
     Indication: METASTATIC NEOPLASM
     Dosage: 350 MG, 50 MG ALTERNATING WITH 100MG ON DAYS 1-10, ORAL
     Route: 048
     Dates: start: 20080311, end: 20080315

REACTIONS (10)
  - ANOREXIA [None]
  - ASTHENIA [None]
  - BODY TEMPERATURE DECREASED [None]
  - DEHYDRATION [None]
  - DIARRHOEA [None]
  - FATIGUE [None]
  - METASTATIC NEOPLASM [None]
  - NAUSEA [None]
  - PANCYTOPENIA [None]
  - PYREXIA [None]
